FAERS Safety Report 15083443 (Version 1)
Quarter: 2018Q2

REPORT INFORMATION
  Report Type: Spontaneous
  Country: US (occurrence: US)
  Receive Date: 20180628
  Receipt Date: 20180628
  Transmission Date: 20180711
  Serious: Yes (Disabling, Other)
  Sender: FDA-Public Use
  Company Number: US-BRISTOL-MYERS SQUIBB COMPANY-BMS-2018-056467

PATIENT
  Sex: Female

DRUGS (1)
  1. COUMADIN [Suspect]
     Active Substance: WARFARIN SODIUM
     Indication: ATRIAL FIBRILLATION
     Dosage: UNAVAILABLE
     Route: 065

REACTIONS (7)
  - Spondylitis [Unknown]
  - Haematochezia [Unknown]
  - Urinary tract infection [Unknown]
  - International normalised ratio increased [Recovering/Resolving]
  - Arthritis [Unknown]
  - Bedridden [Unknown]
  - Clostridium difficile infection [Unknown]

NARRATIVE: CASE EVENT DATE: 2017
